FAERS Safety Report 13981027 (Version 1)
Quarter: 2017Q3

REPORT INFORMATION
  Report Type: Spontaneous
  Country: US (occurrence: None)
  Receive Date: 20170915
  Receipt Date: 20170915
  Transmission Date: 20171128
  Serious: Yes (Hospitalization)
  Sender: FDA-Public Use
  Company Number: None

PATIENT
  Age: 5 Year
  Sex: Male
  Weight: 19.5 kg

DRUGS (2)
  1. VINCRISTINE 2MG/2ML SOLN [Suspect]
     Active Substance: VINCRISTINE
     Indication: ACUTE LYMPHOCYTIC LEUKAEMIA
     Dosage: 1 MG IN NS (28.5 ML INFUSION) ONCE IV
     Route: 042
     Dates: start: 20150518, end: 20170911
  2. LORAZEPAM. [Concomitant]
     Active Substance: LORAZEPAM

REACTIONS (10)
  - Hypotension [None]
  - Peripheral coldness [None]
  - Cough [None]
  - Tachypnoea [None]
  - Retching [None]
  - Pallor [None]
  - Flushing [None]
  - Lethargy [None]
  - Cold sweat [None]
  - Hyperhidrosis [None]

NARRATIVE: CASE EVENT DATE: 20170522
